FAERS Safety Report 9239916 (Version 1)
Quarter: 2013Q2

REPORT INFORMATION
  Report Type: Spontaneous
  Country: US (occurrence: US)
  Receive Date: 20130418
  Receipt Date: 20130418
  Transmission Date: 20140414
  Serious: Yes (Hospitalization)
  Sender: FDA-Public Use
  Company Number: US-SANOFI-AVENTIS-2012SA015574

PATIENT
  Age: 71 Year
  Sex: Male
  Weight: 77.6 kg

DRUGS (8)
  1. LOVENOX [Suspect]
     Indication: PULMONARY EMBOLISM
     Route: 048
     Dates: start: 20111220
  2. INVESTIGATIONAL DRUG [Suspect]
     Indication: NON-SMALL CELL LUNG CANCER
     Route: 048
     Dates: start: 20110131, end: 20120201
  3. KEPPRA [Concomitant]
     Dates: start: 20110923
  4. PROTONIX [Concomitant]
     Dates: start: 20110923
  5. DEXAMETHASONE [Concomitant]
     Dates: start: 20110923
  6. CALCIUM WITH VITAMIN D [Concomitant]
     Dates: start: 20111123
  7. LOPERAMIDE HYDROCHLORIDE [Concomitant]
     Dates: start: 20120104
  8. BACTRIM DS [Concomitant]
     Dates: start: 20111119

REACTIONS (1)
  - Tumour haemorrhage [Unknown]
